FAERS Safety Report 21694638 (Version 19)
Quarter: 2023Q2

REPORT INFORMATION
  Report Type: Report from Study
  Country: BR (occurrence: None)
  Receive Date: 20221207
  Receipt Date: 20230505
  Transmission Date: 20230721
  Serious: Yes (Life-Threatening, Hospitalization)
  Sender: FDA-Public Use
  Company Number: BR-Eisai Medical Research-EC-2022-129330

PATIENT
  Age: 58 Year
  Sex: Male
  Weight: 84.5 kg

DRUGS (5)
  1. LENVATINIB [Suspect]
     Active Substance: LENVATINIB
     Indication: Clear cell renal cell carcinoma
     Route: 048
     Dates: start: 20220803, end: 20221127
  2. QUAVONLIMAB [Suspect]
     Active Substance: QUAVONLIMAB
     Indication: Clear cell renal cell carcinoma
     Dosage: QUAVONLIMAB (MK-1308) 25 MG (+) PEMBROLLIZUMAB (MK-3475) 400 MG
     Route: 042
     Dates: start: 20220803, end: 20221026
  3. PEMBROLIZUMAB [Suspect]
     Active Substance: PEMBROLIZUMAB
     Dosage: QUAVONLIMAB (MK-1308) 25 MG (+) PEMBROLLIZUMAB (MK-3475) 400 MG
     Route: 042
     Dates: start: 20221221
  4. DIPYRONE [Concomitant]
     Active Substance: DIPYRONE
     Dates: start: 20221128, end: 20221128
  5. SCOPOLAMINUM [Concomitant]
     Dates: start: 20221128, end: 20221128

REACTIONS (2)
  - Hyponatraemia [Recovering/Resolving]
  - Anaemia [Recovering/Resolving]

NARRATIVE: CASE EVENT DATE: 20221128
